FAERS Safety Report 4301428-0 (Version None)
Quarter: 2004Q1

REPORT INFORMATION
  Report Type: 
  Country: None (occurrence: None)
  Receive Date: 20040219
  Receipt Date: 20040204
  Transmission Date: 20041129
  Serious: Yes (Hospitalization)
  Sender: FDA-Public Use
  Company Number: 2004IM000309

PATIENT
  Age: 59 Year
  Sex: Male

DRUGS (5)
  1. ADVAFERON (A643_INTERFERON ALFACON-1) [Suspect]
     Indication: HEPATITIS C
     Dosage: 18 MU;QD;SUBCUTANEOUS
     Route: 058
     Dates: start: 20020527, end: 20020609
  2. LOXOPROFEN [Concomitant]
  3. REBAMIPIDE [Concomitant]
  4. GANTON [Concomitant]
  5. SOLITAX H [Concomitant]

REACTIONS (7)
  - ANOREXIA [None]
  - CONVULSION [None]
  - ELECTROENCEPHALOGRAM ABNORMAL [None]
  - LOSS OF CONSCIOUSNESS [None]
  - MALAISE [None]
  - NAUSEA [None]
  - VOMITING [None]
